FAERS Safety Report 5136603-9 (Version None)
Quarter: 2006Q4

REPORT INFORMATION
  Report Type: 
  Country: None (occurrence: None)
  Receive Date: 20061023
  Receipt Date: 20061011
  Transmission Date: 20070319
  Serious: Yes (Hospitalization)
  Sender: FDA-Public Use
  Company Number: 163-C5013-06060061

PATIENT
  Age: 63 Year
  Sex: Male
  Weight: 82.3 kg

DRUGS (7)
  1. CC-5013 (LENALIDOMIDE) (CAPSULES) REVLIMID [Suspect]
     Indication: MULTIPLE MYELOMA
     Dosage: SEE IMAGE
     Route: 048
     Dates: start: 20060517, end: 20060527
  2. CC-5013 (LENALIDOMIDE) (CAPSULES) REVLIMID [Suspect]
     Indication: MULTIPLE MYELOMA
     Dosage: SEE IMAGE
     Route: 048
     Dates: start: 20060613
  3. DEXAMETHASONE TAB [Suspect]
     Indication: MULTIPLE MYELOMA
     Dosage: 40 MG, DAILY DAYS 1-4, 9-12, 17-20, ORAL
     Route: 048
     Dates: start: 20060517, end: 20060527
  4. OXYCODONE HCL [Concomitant]
  5. COLACE (DOCUSATE SODIUM) [Concomitant]
  6. PEPCID [Concomitant]
  7. ZOFRAN [Concomitant]

REACTIONS (4)
  - ALANINE AMINOTRANSFERASE INCREASED [None]
  - BLOOD LACTATE DEHYDROGENASE INCREASED [None]
  - HYPERBILIRUBINAEMIA [None]
  - JAUNDICE [None]
